FAERS Safety Report 18284501 (Version 1)
Quarter: 2020Q3

REPORT INFORMATION
  Report Type: Report from Study
  Country: MX (occurrence: MX)
  Receive Date: 20200918
  Receipt Date: 20200918
  Transmission Date: 20201103
  Serious: Yes (Death)
  Sender: FDA-Public Use
  Company Number: MX-UCBSA-2020036037

PATIENT
  Sex: Female
  Weight: 68 kg

DRUGS (5)
  1. VALPROATE [Concomitant]
     Active Substance: VALPROIC ACID
     Indication: EPILEPSY
     Dosage: 400 MILLIGRAM, 2X/DAY (BID)
     Dates: end: 201812
  2. BRIVIACT [Suspect]
     Active Substance: BRIVARACETAM
     Indication: EPILEPSY
     Dosage: 100 MG 0.5 TABLET TWICE DAILY
     Route: 048
     Dates: start: 2017, end: 201812
  3. LEVETIRACETAM. [Concomitant]
     Active Substance: LEVETIRACETAM
     Indication: EPILEPSY
     Dosage: 1000 MILLIGRAM, 2X/DAY (BID)
     Route: 048
     Dates: start: 2017, end: 201812
  4. LACOSAMIDE. [Suspect]
     Active Substance: LACOSAMIDE
     Dosage: 200 MG?0.5 DOSAGE FORM, 2X/DAY (BID)
     Dates: end: 201812
  5. LACOSAMIDE. [Suspect]
     Active Substance: LACOSAMIDE
     Indication: EPILEPSY
     Dosage: 50 MG?0.5 DOSAGE FORM, 2X/DAY (BID)

REACTIONS (3)
  - Epilepsy [Fatal]
  - Drug ineffective [Unknown]
  - Off label use [Unknown]

NARRATIVE: CASE EVENT DATE: 2017
